FAERS Safety Report 4416830-6 (Version None)
Quarter: 2004Q3

REPORT INFORMATION
  Report Type: 
  Country: None (occurrence: None)
  Receive Date: 20040805
  Receipt Date: 20040728
  Transmission Date: 20050211
  Serious: Yes (Other)
  Sender: FDA-Public Use
  Company Number: PHFR2004GB02994

PATIENT
  Age: 48 Year

DRUGS (1)
  1. TEGRETOL [Suspect]
     Dosage: 1400 MG/DAY
     Route: 048
     Dates: start: 19970101

REACTIONS (5)
  - GAMMA-GLUTAMYLTRANSFERASE INCREASED [None]
  - HYPOAESTHESIA [None]
  - HYPOAESTHESIA ORAL [None]
  - TIC [None]
  - VISUAL ACUITY REDUCED [None]
